FAERS Safety Report 7982513-9 (Version None)
Quarter: 2011Q4

REPORT INFORMATION
  Report Type: 
  Country: None (occurrence: None)
  Receive Date: 20111215
  Receipt Date: 20111206
  Transmission Date: 20120403
  Serious: Yes (Other)
  Sender: FDA-Public Use
  Company Number: US-ROCHE-1021390

PATIENT
  Sex: Female
  Weight: 77 kg

DRUGS (2)
  1. SUDAFED 12 HOUR [Concomitant]
  2. NAPROXEN [Suspect]
     Indication: ARTHRITIS
     Route: 048
     Dates: start: 20111204, end: 20111205

REACTIONS (2)
  - FEELING ABNORMAL [None]
  - MALAISE [None]
